FAERS Safety Report 7101542-0 (Version None)
Quarter: 2010Q4

REPORT INFORMATION
  Report Type: 
  Country: None (occurrence: None)
  Receive Date: 20101115
  Receipt Date: 20101110
  Transmission Date: 20110411
  Serious: Yes (Other)
  Sender: FDA-Public Use
  Company Number: BR-PFIZER INC-2010145528

PATIENT
  Age: 82 Year
  Sex: Female
  Weight: 60 kg

DRUGS (5)
  1. XALATAN [Suspect]
     Indication: GLAUCOMA
     Dosage: 3 UG, 1X/DAY
     Route: 047
     Dates: start: 20100401, end: 20101101
  2. CARMELLOSE SODIUM [Concomitant]
     Indication: EYE LUBRICATION THERAPY
     Dosage: UNK
  3. MODURETIC 5-50 [Concomitant]
     Indication: BLOOD PRESSURE INCREASED
     Dosage: UNK
  4. MODURETIC 5-50 [Concomitant]
     Indication: POLYURIA
  5. AMILORIDE HYDROCHLORIDE [Concomitant]
     Dosage: UNK

REACTIONS (3)
  - DRUG DOSE OMISSION [None]
  - INTRAOCULAR PRESSURE INCREASED [None]
  - OCULAR HYPERAEMIA [None]
